FAERS Safety Report 15752208 (Version 1)
Quarter: 2018Q4

REPORT INFORMATION
  Report Type: Spontaneous
  Country: GB (occurrence: GB)
  Receive Date: 20181221
  Receipt Date: 20181221
  Transmission Date: 20190205
  Serious: Yes (Other)
  Sender: FDA-Public Use
  Company Number: GB-PFIZER INC-318575

PATIENT
  Age: 51 Year
  Sex: Female

DRUGS (7)
  1. CIPROFLOXACIN. [Suspect]
     Active Substance: CIPROFLOXACIN
  2. ANAESTHETICS [Concomitant]
     Active Substance: UNSPECIFIED INGREDIENT
  3. KEPPRA [Concomitant]
     Active Substance: LEVETIRACETAM
  4. PHENYTOIN SODIUM. [Concomitant]
     Active Substance: PHENYTOIN SODIUM
  5. LYRICA [Interacting]
     Active Substance: PREGABALIN
     Dosage: 25 MG, TWICE A DAY
  6. LAMOTRIGINE. [Concomitant]
     Active Substance: LAMOTRIGINE
  7. EPANUTIN /00017402/ [Concomitant]

REACTIONS (2)
  - Epilepsy [Unknown]
  - Drug interaction [Unknown]
